FAERS Safety Report 7656936-1 (Version None)
Quarter: 2011Q3

REPORT INFORMATION
  Report Type: 
  Country: None (occurrence: None)
  Receive Date: 20110802
  Receipt Date: 20110722
  Transmission Date: 20111222
  Serious: Yes (Death)
  Sender: FDA-Public Use
  Company Number: JP-2011-11213

PATIENT
  Age: 94 Year
  Sex: Female

DRUGS (4)
  1. LASIX [Concomitant]
  2. SAMSCA [Suspect]
     Dosage: 7.5 MG MILLIGRAM(S), QD, PARENTERAL
     Route: 051
     Dates: start: 20110719, end: 20110719
  3. DIURETICS [Concomitant]
  4. TORSEMIDE [Concomitant]

REACTIONS (1)
  - DEATH [None]
